FAERS Safety Report 5300025-8 (Version None)
Quarter: 2007Q2

REPORT INFORMATION
  Report Type: 
  Country: None (occurrence: None)
  Receive Date: 20070410
  Receipt Date: 20070330
  Transmission Date: 20071010
  Serious: Yes (Other)
  Sender: FDA-Public Use
  Company Number: B0463157A

PATIENT
  Age: 28 Year
  Sex: Female

DRUGS (2)
  1. PAXIL [Suspect]
     Indication: DECREASED APPETITE
     Dosage: 5 MG / TWICE PER DAY / ORAL
     Route: 048
     Dates: start: 20070210, end: 20070220
  2. ALPRAZOLAM [Concomitant]

REACTIONS (1)
  - SUICIDAL IDEATION [None]
